FAERS Safety Report 8438157-8 (Version None)
Quarter: 2012Q2

REPORT INFORMATION
  Report Type: 
  Country: None (occurrence: None)
  Receive Date: 20120614
  Receipt Date: 20120601
  Transmission Date: 20120825
  Serious: Yes (Hospitalization)
  Sender: FDA-Public Use
  Company Number: TR-MYLANLABS-2012S1011477

PATIENT
  Age: 17 Year
  Sex: Male

DRUGS (1)
  1. CLINDAMYCIN [Suspect]
     Indication: ACUTE TONSILLITIS
     Route: 065

REACTIONS (2)
  - ACUTE MYOCARDIAL INFARCTION [None]
  - KOUNIS SYNDROME [None]
